FAERS Safety Report 20419766 (Version 1)
Quarter: 2022Q1

REPORT INFORMATION
  Report Type: Spontaneous
  Country: GB (occurrence: GB)
  Receive Date: 20220203
  Receipt Date: 20220203
  Transmission Date: 20220424
  Serious: Yes (Hospitalization, Other)
  Sender: FDA-Public Use
  Company Number: GB-AMGEN-GBRSP2022014757

PATIENT
  Age: 81 Year
  Sex: Female

DRUGS (13)
  1. PROLIA [Suspect]
     Active Substance: DENOSUMAB
     Indication: Giant cell arteritis
     Route: 065
  2. PROLIA [Suspect]
     Active Substance: DENOSUMAB
     Indication: Off label use
  3. METHYLPREDNISOLONE [Concomitant]
     Active Substance: METHYLPREDNISOLONE
     Dosage: UNK
     Route: 042
  4. PREDNISOLONE [Concomitant]
     Active Substance: PREDNISOLONE
     Dosage: 60 MILLIGRAM, QD
  5. FLUCONAZOLE [Concomitant]
     Active Substance: FLUCONAZOLE
     Indication: Oral candidiasis
  6. RAMIPRIL [Concomitant]
     Active Substance: RAMIPRIL
  7. CHLORHEXIDINE [Concomitant]
     Active Substance: CHLORHEXIDINE
  8. OXETACAINE [Concomitant]
     Active Substance: OXETHAZAINE
  9. BENZYDAMINE [Concomitant]
     Active Substance: BENZYDAMINE
  10. DIHYDROCODEINE [Concomitant]
     Active Substance: DIHYDROCODEINE
  11. CHOLINE SALICYLATE [Concomitant]
     Active Substance: CHOLINE SALICYLATE
  12. DEVICE\GLUCOSE OXIDASE\LACTOFERRIN\LACTOPEROXIDASE BOVINE\LYSOZYME HYD [Concomitant]
     Active Substance: DEVICE\GLUCOSE OXIDASE\LACTOFERRIN\LACTOPEROXIDASE BOVINE\LYSOZYME HYDROCHLORIDE
  13. MORPHINE SULFATE [Concomitant]
     Active Substance: MORPHINE SULFATE

REACTIONS (4)
  - Cerebellar stroke [Unknown]
  - Hypertension [Unknown]
  - Tongue necrosis [Unknown]
  - Off label use [Unknown]
